FAERS Safety Report 5229085-X (Version None)
Quarter: 2007Q1

REPORT INFORMATION
  Report Type: 
  Country: None (occurrence: None)
  Receive Date: 20061201
  Receipt Date: 20060815
  Transmission Date: 20070707
  Serious: No
  Sender: FDA-Public Use
  Company Number: US200608003282

PATIENT
  Age: 57 Year
  Sex: Female

DRUGS (6)
  1. CYMBALTA [Suspect]
     Indication: DEPRESSION
     Dosage: 60 MG, DAILY (1/D), ORAL
     Route: 048
     Dates: start: 20060101
  2. SYNTHROID [Concomitant]
  3. ESTRATEST [Concomitant]
  4. EXCEDRIN /USA/ (ACETYLSALICYLIC ACID, CAFFEINE, PARACETAMOL) [Concomitant]
  5. PROVIGIL [Concomitant]
  6. EFFEXOR XR [Concomitant]

REACTIONS (1)
  - BLUNTED AFFECT [None]
